FAERS Safety Report 23703672 (Version 5)
Quarter: 2024Q4

REPORT INFORMATION
  Report Type: Spontaneous
  Country: US (occurrence: US)
  Receive Date: 20240403
  Receipt Date: 20241016
  Transmission Date: 20250115
  Serious: Yes (Other)
  Sender: BRISTOL-MYERS SQUIBB COMPANY
  Company Number: US-BRISTOL-MYERS SQUIBB COMPANY-2024-047052

PATIENT
  Age: 89 Year
  Sex: Male

DRUGS (3)
  1. LENALIDOMIDE [Suspect]
     Active Substance: LENALIDOMIDE
     Indication: Plasma cell myeloma
     Dosage: TAKE 1 CAPSULE BY MOUTH EVERY DAY FOR 21 DAYS ON THEN 7 DAYS OFF EVERY 28 DAY CYCLE
     Route: 048
  2. LENALIDOMIDE [Suspect]
     Active Substance: LENALIDOMIDE
     Indication: Plasma cell myeloma in remission
     Dosage: TAKE 1 CAPSULE BY MOUTH EVERY DAY FOR 21 DAYS ON THEN 7 DAYS OFF EVERY 28 DAY CYCLE
     Route: 048
  3. LENALIDOMIDE [Suspect]
     Active Substance: LENALIDOMIDE
     Dosage: TAKE 1 CAPSULE BY MOUTH EVERY DAY FOR 21 DAYS THEN 7 DAYS OFF IN A 28 DAY CYCLE
     Route: 048

REACTIONS (13)
  - Diverticulitis [Recovering/Resolving]
  - Bone disorder [Recovering/Resolving]
  - Constipation [Recovering/Resolving]
  - Gastrooesophageal reflux disease [Recovering/Resolving]
  - Abdominal discomfort [Recovering/Resolving]
  - Prostatic disorder [Recovering/Resolving]
  - Nausea [Recovering/Resolving]
  - Sleep disorder [Recovering/Resolving]
  - Pain [Recovering/Resolving]
  - Fatigue [Recovering/Resolving]
  - Decreased appetite [Recovering/Resolving]
  - Product dose omission in error [Unknown]
  - Gastrointestinal disorder [Not Recovered/Not Resolved]

NARRATIVE: CASE EVENT DATE: 20240301
